FAERS Safety Report 7464671-8 (Version None)
Quarter: 2011Q2

REPORT INFORMATION
  Report Type: 
  Country: None (occurrence: None)
  Receive Date: 20110509
  Receipt Date: 20101101
  Transmission Date: 20111010
  Serious: No
  Sender: FDA-Public Use
  Company Number: US-BAYER-201041110NA

PATIENT
  Sex: Female

DRUGS (1)
  1. YAZ [Suspect]
     Dosage: UNK
     Dates: start: 20100101

REACTIONS (3)
  - NAUSEA [None]
  - FATIGUE [None]
  - DIZZINESS [None]
